FAERS Safety Report 7820152-0 (Version None)
Quarter: 2011Q4

REPORT INFORMATION
  Report Type: 
  Country: None (occurrence: None)
  Receive Date: 20111018
  Receipt Date: 20111013
  Transmission Date: 20120403
  Serious: Yes (Other)
  Sender: FDA-Public Use
  Company Number: US-PFIZER INC-2011245388

PATIENT
  Sex: Male
  Weight: 90.703 kg

DRUGS (3)
  1. NEURONTIN [Suspect]
     Dosage: UNK
     Route: 048
     Dates: end: 20111013
  2. LISINOPRIL [Concomitant]
     Indication: HYPERTENSION
     Dosage: UNK
  3. NEURONTIN [Suspect]
     Indication: NEURALGIA
     Dosage: UNK, 2X/DAY
     Route: 048
     Dates: start: 20110901

REACTIONS (2)
  - SWELLING FACE [None]
  - EYE SWELLING [None]
